FAERS Safety Report 10951364 (Version 2)
Quarter: 2015Q1

REPORT INFORMATION
  Report Type: Report from Study
  Country: GR (occurrence: GR)
  Receive Date: 20150324
  Receipt Date: 20150326
  Transmission Date: 20150721
  Serious: Yes (Other)
  Sender: FDA-Public Use
  Company Number: PHHY2015GR033096

PATIENT
  Sex: Male

DRUGS (2)
  1. DONEPEZIL [Suspect]
     Active Substance: DONEPEZIL
     Indication: PRODUCT USED FOR UNKNOWN INDICATION
     Dosage: UNK
     Route: 065
  2. EXELON [Suspect]
     Active Substance: RIVASTIGMINE TARTRATE
     Indication: DEMENTIA
     Route: 065

REACTIONS (5)
  - Frontotemporal dementia [Unknown]
  - Weight decreased [Unknown]
  - Drug ineffective [Unknown]
  - Aphasia [Unknown]
  - General physical health deterioration [Unknown]
